FAERS Safety Report 15618923 (Version 5)
Quarter: 2020Q1

REPORT INFORMATION
  Report Type: Spontaneous
  Country: US (occurrence: US)
  Receive Date: 20181114
  Receipt Date: 20200323
  Transmission Date: 20200409
  Serious: Yes (Hospitalization, Other)
  Sender: FDA-Public Use
  Company Number: US-BRISTOL-MYERS SQUIBB COMPANY-BMS-2018-105012

PATIENT
  Age: 83 Year
  Sex: Female
  Weight: 69.4 kg

DRUGS (2)
  1. YERVOY [Suspect]
     Active Substance: IPILIMUMAB
     Indication: RENAL CELL CARCINOMA
     Dosage: 3 MG/KG, QMO
     Route: 042
     Dates: start: 20180928
  2. OPDIVO [Suspect]
     Active Substance: NIVOLUMAB
     Indication: RENAL CELL CARCINOMA
     Dosage: 1 MG/KG, Q3WK
     Route: 042
     Dates: start: 20180928

REACTIONS (10)
  - Hypophosphataemia [Unknown]
  - Intentional product use issue [Unknown]
  - Drug-induced liver injury [Recovering/Resolving]
  - Colitis ulcerative [Recovering/Resolving]
  - Anaemia [Unknown]
  - Hypomagnesaemia [Unknown]
  - Sepsis [Unknown]
  - Incorrect dose administered [Unknown]
  - Hypokalaemia [Unknown]
  - Gastrointestinal inflammation [Unknown]

NARRATIVE: CASE EVENT DATE: 20181025
